FAERS Safety Report 5874840-6 (Version None)
Quarter: 2008Q3

REPORT INFORMATION
  Report Type: 
  Country: None (occurrence: None)
  Receive Date: 20080909
  Receipt Date: 20080903
  Transmission Date: 20090109
  Serious: Yes (Life-Threatening, Disabling, Other)
  Sender: FDA-Public Use
  Company Number: BE-JNJFOC-20080405227

PATIENT
  Sex: Male
  Weight: 103 kg

DRUGS (6)
  1. INFLIXIMAB [Suspect]
     Route: 042
  2. INFLIXIMAB [Suspect]
     Route: 042
  3. INFLIXIMAB [Suspect]
     Route: 042
  4. INFLIXIMAB [Suspect]
     Indication: CROHN'S DISEASE
     Route: 042
  5. IMURAN [Concomitant]
     Indication: CROHN'S DISEASE
  6. COLITOFALK [Concomitant]

REACTIONS (3)
  - CYTOMEGALOVIRUS HEPATITIS [None]
  - LEUKOPENIA [None]
  - THROMBOCYTOPENIA [None]
